FAERS Safety Report 5636478-5 (Version None)
Quarter: 2008Q1

REPORT INFORMATION
  Report Type: 
  Country: None (occurrence: None)
  Receive Date: 20080225
  Receipt Date: 20080214
  Transmission Date: 20080703
  Serious: Yes (Other)
  Sender: FDA-Public Use
  Company Number: CA-JNJFOC-20080204035

PATIENT
  Sex: Male

DRUGS (1)
  1. REMICADE [Suspect]
     Indication: CROHN'S DISEASE
     Dosage: FOR AT LEAST 2 YEARS
     Route: 042

REACTIONS (1)
  - LUPUS-LIKE SYNDROME [None]
